FAERS Safety Report 8622837-5 (Version None)
Quarter: 2012Q3

REPORT INFORMATION
  Report Type: 
  Country: None (occurrence: None)
  Receive Date: 20120827
  Receipt Date: 20120822
  Transmission Date: 20120928
  Serious: Yes (Other)
  Sender: FDA-Public Use
  Company Number: PHFR2012GB004638

PATIENT
  Sex: Male

DRUGS (1)
  1. CLOZARIL [Suspect]
     Indication: SCHIZOPHRENIA
     Dosage: 12.5 MG
     Route: 048
     Dates: start: 20120813, end: 20120813

REACTIONS (4)
  - HYPOTENSION [None]
  - DYSSTASIA [None]
  - SALIVARY HYPERSECRETION [None]
  - DIZZINESS [None]
